FAERS Safety Report 17796504 (Version 2)
Quarter: 2020Q2

REPORT INFORMATION
  Report Type: Spontaneous
  Country: CH (occurrence: CH)
  Receive Date: 20200518
  Receipt Date: 20200525
  Transmission Date: 20200714
  Serious: Yes (Death)
  Sender: FDA-Public Use
  Company Number: CH-BEH-2020117518

PATIENT

DRUGS (1)
  1. PRIVIGEN [Suspect]
     Active Substance: HUMAN IMMUNOGLOBULIN G
     Indication: CEREBELLAR SYNDROME
     Dosage: 0.4G/KG BW [BODY WEIGHT]
     Route: 042
     Dates: start: 20200226, end: 20200304

REACTIONS (4)
  - No adverse event [Unknown]
  - Death [Fatal]
  - Off label use [Unknown]
  - Product use in unapproved indication [Unknown]
